FAERS Safety Report 9374899 (Version 1)
Quarter: 2013Q2

REPORT INFORMATION
  Report Type: Spontaneous
  Country: FR (occurrence: FR)
  Receive Date: 20130628
  Receipt Date: 20130628
  Transmission Date: 20140414
  Serious: Yes (Disabling, Other)
  Sender: FDA-Public Use
  Company Number: FR-009507513-1306FRA010958

PATIENT
  Age: 31 Year
  Sex: Female

DRUGS (1)
  1. NUVARING [Suspect]
     Indication: CONTRACEPTION
     Dosage: UNK
     Route: 067
     Dates: end: 200607

REACTIONS (2)
  - Retinal artery occlusion [Recovered/Resolved with Sequelae]
  - Visual field defect [Recovered/Resolved with Sequelae]
